FAERS Safety Report 16182909 (Version 1)
Quarter: 2019Q2

REPORT INFORMATION
  Report Type: Spontaneous
  Country: GB (occurrence: GB)
  Receive Date: 20190411
  Receipt Date: 20190411
  Transmission Date: 20190711
  Serious: Yes (Other)
  Sender: FDA-Public Use
  Company Number: GB-ACCORD-119884

PATIENT
  Age: 65 Year
  Sex: Female

DRUGS (10)
  1. CITALOPRAM [Concomitant]
     Active Substance: CITALOPRAM HYDROBROMIDE
  2. ISOSORBIDE. [Concomitant]
     Active Substance: ISOSORBIDE
  3. OMEPRAZOLE. [Concomitant]
     Active Substance: OMEPRAZOLE
  4. ATORVASTATIN [Concomitant]
     Active Substance: ATORVASTATIN
  5. CLOPIDOGREL [Suspect]
     Active Substance: CLOPIDOGREL BISULFATE
     Indication: PREOPERATIVE CARE
  6. TAMOXIFEN [Concomitant]
     Active Substance: TAMOXIFEN
     Dosage: MORNING
  7. ACETYLSALICYLIC ACID [Suspect]
     Active Substance: ASPIRIN
     Indication: PREOPERATIVE CARE
  8. ATENOLOL/ATENOLOL HYDROCHLORIDE [Concomitant]
  9. THIAMINE. [Concomitant]
     Active Substance: THIAMINE
  10. LEVOTHYROXINE. [Concomitant]
     Active Substance: LEVOTHYROXINE
     Dosage: MORNING

REACTIONS (1)
  - Thrombocytopenia [Unknown]
